FAERS Safety Report 16589896 (Version 1)
Quarter: 2019Q3

REPORT INFORMATION
  Report Type: Report from Study
  Country: US (occurrence: US)
  Receive Date: 20190718
  Receipt Date: 20190718
  Transmission Date: 20191004
  Serious: Yes (Other)
  Sender: FDA-Public Use
  Company Number: US-TEVA-2019-US-1074850

PATIENT
  Sex: Male

DRUGS (6)
  1. ASPIRIN. [Concomitant]
     Active Substance: ASPIRIN
     Dosage: BABY ASPIRIN
  2. COUMADIN [Concomitant]
     Active Substance: WARFARIN SODIUM
  3. NEUPRO [Concomitant]
     Active Substance: ROTIGOTINE
  4. AUSTEDO [Suspect]
     Active Substance: DEUTETRABENAZINE
     Indication: TARDIVE DYSKINESIA
     Dosage: 24 MILLIGRAM DAILY;
     Route: 048
     Dates: start: 20190621
  5. PLAVIX [Concomitant]
     Active Substance: CLOPIDOGREL BISULFATE
  6. NEUPRO [Concomitant]
     Active Substance: ROTIGOTINE

REACTIONS (11)
  - Drug dose titration not performed [Unknown]
  - Limb injury [Unknown]
  - Dizziness [Not Recovered/Not Resolved]
  - Condition aggravated [Not Recovered/Not Resolved]
  - Balance disorder [Unknown]
  - Fall [Not Recovered/Not Resolved]
  - Contusion [Unknown]
  - Wheelchair user [Not Recovered/Not Resolved]
  - Intestinal haemorrhage [Unknown]
  - Parkinsonian gait [Not Recovered/Not Resolved]
  - Gait inability [Not Recovered/Not Resolved]

NARRATIVE: CASE EVENT DATE: 2019
